FAERS Safety Report 6162045-3 (Version None)
Quarter: 2009Q2

REPORT INFORMATION
  Report Type: 
  Country: None (occurrence: None)
  Receive Date: 20090417
  Receipt Date: 20090403
  Transmission Date: 20091009
  Serious: Yes (Other)
  Sender: FDA-Public Use
  Company Number: GXKR2009GB04313

PATIENT
  Age: 66 Year
  Sex: Female

DRUGS (3)
  1. CLONIDINE [Suspect]
     Indication: AGITATION
     Dosage: QD
  2. CLONIDINE [Suspect]
     Indication: HYPERTENSION
     Dosage: QD
  3. ESCITALOPRAM [Suspect]
     Indication: DEPRESSION
     Dosage: 5 MG, QD

REACTIONS (4)
  - DEPRESSED LEVEL OF CONSCIOUSNESS [None]
  - DRUG INTERACTION [None]
  - SEDATION [None]
  - SOMNOLENCE [None]
